FAERS Safety Report 8207297-0 (Version None)
Quarter: 2012Q1

REPORT INFORMATION
  Report Type: 
  Country: None (occurrence: None)
  Receive Date: 20120312
  Receipt Date: 20120301
  Transmission Date: 20120608
  Serious: Yes (Death, Hospitalization)
  Sender: FDA-Public Use
  Company Number: DKLU1077458

PATIENT
  Age: 1 Day
  Sex: Female

DRUGS (2)
  1. ONFI [Suspect]
     Indication: EPILEPSY
     Dosage: 5 MG MILLIGRAM(S), 1 IN 1 D, TRANSPLACENTAL
     Route: 064
     Dates: start: 20110617, end: 20111212
  2. KEPPRA [Suspect]
     Indication: EPILEPSY
     Dosage: 1 G GRAM(S), 1 IN 1 D, TRANSPLACENTAL
     Route: 064
     Dates: start: 20110617, end: 20111212

REACTIONS (14)
  - DEATH NEONATAL [None]
  - JAUNDICE NEONATAL [None]
  - PATENT DUCTUS ARTERIOSUS [None]
  - RENAL FAILURE ACUTE [None]
  - FOETAL GROWTH RESTRICTION [None]
  - MATERNAL DRUGS AFFECTING FOETUS [None]
  - CAESAREAN SECTION [None]
  - MECONIUM ILEUS [None]
  - HYPERTENSION NEONATAL [None]
  - VOLVULUS [None]
  - GASTROINTESTINAL NECROSIS [None]
  - PREMATURE BABY [None]
  - HAEMATURIA [None]
  - FOETAL HEART RATE DISORDER [None]
